FAERS Safety Report 8270841-1 (Version None)
Quarter: 2012Q2

REPORT INFORMATION
  Report Type: 
  Country: None (occurrence: None)
  Receive Date: 20120410
  Receipt Date: 20120410
  Transmission Date: 20120825
  Serious: Yes (Hospitalization)
  Sender: FDA-Public Use
  Company Number: None

PATIENT
  Age: 75 Year
  Sex: Female
  Weight: 78.471 kg

DRUGS (1)
  1. FUROSEMIDE [Suspect]
     Dosage: 40MG
     Route: 048

REACTIONS (5)
  - ASTHENIA [None]
  - VOMITING [None]
  - HYPONATRAEMIA [None]
  - NAUSEA [None]
  - FATIGUE [None]
